FAERS Safety Report 6649689-7 (Version None)
Quarter: 2010Q1

REPORT INFORMATION
  Report Type: 
  Country: None (occurrence: None)
  Receive Date: 20100324
  Receipt Date: 20090625
  Transmission Date: 20100710
  Serious: No
  Sender: FDA-Public Use
  Company Number: US-AMGEN-KDL353285

PATIENT

DRUGS (1)
  1. NEULASTA [Suspect]
     Indication: NEUTROPENIA

REACTIONS (1)
  - DRUG INEFFECTIVE [None]
